FAERS Safety Report 21773709 (Version 2)
Quarter: 2022Q4

REPORT INFORMATION
  Report Type: Report from Study
  Country: US (occurrence: US)
  Receive Date: 20221223
  Receipt Date: 20221227
  Transmission Date: 20230113
  Serious: No
  Sender: FDA-Public Use
  Company Number: US-ABBVIE-4208244

PATIENT
  Sex: Female

DRUGS (2)
  1. HUMIRA [Suspect]
     Active Substance: ADALIMUMAB
     Indication: Uveitis
     Dosage: LAST ADMIN DATE WAS 2022
     Route: 058
     Dates: start: 20220621
  2. HUMIRA [Suspect]
     Active Substance: ADALIMUMAB
     Dosage: DOSE CHANGED
     Route: 058
     Dates: start: 20220802

REACTIONS (2)
  - Nasopharyngitis [Unknown]
  - Therapeutic product effect incomplete [Not Recovered/Not Resolved]
